FAERS Safety Report 10012876 (Version 1)
Quarter: 2014Q1

REPORT INFORMATION
  Report Type: Report from Study
  Country: GB (occurrence: GB)
  Receive Date: 20140314
  Receipt Date: 20140314
  Transmission Date: 20141002
  Serious: Yes (Death)
  Sender: FDA-Public Use
  Company Number: GB-BRISTOL-MYERS SQUIBB COMPANY-20463782

PATIENT
  Sex: Male
  Weight: .58 kg

DRUGS (4)
  1. REYATAZ [Suspect]
     Route: 064
     Dates: start: 20130509
  2. NORVIR [Suspect]
     Route: 064
     Dates: start: 20130509
  3. TRUVADA [Suspect]
     Dosage: 1DF = 1TAB/CAPS
     Route: 064
     Dates: start: 20130509
  4. ISENTRESS [Suspect]
     Route: 064
     Dates: start: 20130509

REACTIONS (2)
  - Stillbirth [Fatal]
  - Foetal exposure during pregnancy [Unknown]
